FAERS Safety Report 18736357 (Version 3)
Quarter: 2021Q2

REPORT INFORMATION
  Report Type: Spontaneous
  Country: CZ (occurrence: CZ)
  Receive Date: 20210113
  Receipt Date: 20210416
  Transmission Date: 20210717
  Serious: Yes (Other)
  Sender: FDA-Public Use
  Company Number: CZ-TEVA-2021-CZ-1866574

PATIENT
  Age: 7 Decade
  Sex: Female

DRUGS (7)
  1. 5?FLUOROURACIL [Suspect]
     Active Substance: FLUOROURACIL
     Indication: COLORECTAL CANCER METASTATIC
     Route: 065
  2. FOLINIC ACID [Suspect]
     Active Substance: LEUCOVORIN
     Indication: COLORECTAL CANCER METASTATIC
     Dosage: 5 CYCLES OF MFOLFOX6 REGIMEN
     Route: 065
     Dates: start: 2011, end: 2011
  3. FOLINIC ACID [Suspect]
     Active Substance: LEUCOVORIN
     Dosage: 4 CYCLES OF FOLFIRI REGIMEN
     Route: 065
     Dates: start: 2014, end: 2014
  4. FOLINIC ACID [Suspect]
     Active Substance: LEUCOVORIN
     Dosage: 21 CYCLES OF FUFA
     Route: 065
     Dates: start: 2014, end: 201510
  5. FOLINIC ACID [Suspect]
     Active Substance: LEUCOVORIN
     Route: 065
  6. FOLINIC ACID [Suspect]
     Active Substance: LEUCOVORIN
     Route: 065
  7. OXALIPLATIN. [Suspect]
     Active Substance: OXALIPLATIN
     Indication: COLORECTAL CANCER METASTATIC
     Dosage: 5 CYCLES OF MFOLFOX6 REGIMEN
     Route: 065
     Dates: start: 2011, end: 2011

REACTIONS (2)
  - Neuropathy peripheral [Unknown]
  - Neutropenia [Unknown]

NARRATIVE: CASE EVENT DATE: 2011
